FAERS Safety Report 4302163-5 (Version None)
Quarter: 2004Q1

REPORT INFORMATION
  Report Type: 
  Country: None (occurrence: None)
  Receive Date: 20040126
  Receipt Date: 20031023
  Transmission Date: 20041129
  Serious: No
  Sender: FDA-Public Use
  Company Number: US_031098457

PATIENT
  Age: 9 Year
  Sex: Male
  Weight: 25 kg

DRUGS (4)
  1. PROZAC [Suspect]
     Indication: ANXIETY
     Dosage: 5 MG/1 DAY
     Dates: start: 20031023
  2. PROZAC [Suspect]
     Indication: AUTISM
     Dosage: 5 MG/1 DAY
     Dates: start: 20031023
  3. STRATTERA [Suspect]
     Indication: ATTENTION DEFICIT/HYPERACTIVITY DISORDER
     Dosage: 30 MG
  4. ZYRTEC [Concomitant]

REACTIONS (6)
  - ABNORMAL BEHAVIOUR [None]
  - AGGRESSION [None]
  - ANXIETY [None]
  - DECREASED APPETITE [None]
  - DISTURBANCE IN ATTENTION [None]
  - INSOMNIA [None]
